FAERS Safety Report 9493345 (Version 2)
Quarter: 2013Q3

REPORT INFORMATION
  Report Type: Report from Study
  Country: US (occurrence: US)
  Receive Date: 20130902
  Receipt Date: 20130905
  Transmission Date: 20140515
  Serious: Yes (Hospitalization)
  Sender: FDA-Public Use
  Company Number: PHHO2013US011155

PATIENT
  Age: 74 Year
  Sex: Male
  Weight: 83.3 kg

DRUGS (8)
  1. SOM230 [Suspect]
     Indication: PROSTATE CANCER METASTATIC
     Dosage: 40 MG EVERY 28 DAYS
     Route: 030
     Dates: start: 20130718
  2. DOCETAXEL [Suspect]
     Indication: PROSTATE CANCER METASTATIC
     Dosage: 75 MG/M2 Q3 WEEKS
     Route: 042
     Dates: start: 20130718
  3. PREDNISONE [Suspect]
     Indication: PROSTATE CANCER METASTATIC
     Dosage: 5 MG, QD
     Route: 048
     Dates: start: 20130718
  4. GLYBURIDE [Concomitant]
     Dosage: UNK
     Dates: start: 2005
  5. LISINOPRIL [Concomitant]
     Dosage: UNK
     Dates: start: 2005
  6. METFORMIN [Concomitant]
     Dosage: UNK
     Dates: start: 2005
  7. DIGITEK [Concomitant]
     Dosage: UNK
     Dates: start: 2005
  8. CYMBALTA [Concomitant]
     Dosage: UNK
     Dates: start: 2005

REACTIONS (3)
  - Hypotension [Recovered/Resolved]
  - Hyperglycaemia [Recovering/Resolving]
  - Dehydration [Recovered/Resolved]
